FAERS Safety Report 10924015 (Version 2)
Quarter: 2015Q2

REPORT INFORMATION
  Report Type: Spontaneous
  Country: US (occurrence: US)
  Receive Date: 20150318
  Receipt Date: 20150526
  Transmission Date: 20150821
  Serious: No
  Sender: FDA-Public Use
  Company Number: US-JNJFOC-20140103034

PATIENT
  Sex: Male

DRUGS (1)
  1. ITRACONAZOLE. [Suspect]
     Active Substance: ITRACONAZOLE
     Indication: LUNG INFECTION
     Route: 048
     Dates: start: 20131217

REACTIONS (1)
  - Hepatic enzyme increased [Not Recovered/Not Resolved]
